FAERS Safety Report 5827656-0 (Version None)
Quarter: 2008Q3

REPORT INFORMATION
  Report Type: 
  Country: None (occurrence: None)
  Receive Date: 20080728
  Receipt Date: 20080620
  Transmission Date: 20090109
  Serious: Yes (Hospitalization)
  Sender: FDA-Public Use
  Company Number: 1000000207

PATIENT
  Age: 68 Year
  Sex: Male

DRUGS (19)
  1. CITALOPRAM (CITALOPRAM HYDROBROMIDE) (20 MILLIGRAM) [Suspect]
     Dosage: 20 MG (20 MG,1 IN 1 D), ORAL
     Route: 048
     Dates: start: 20070501, end: 20080123
  2. LYRICA [Suspect]
     Dosage: 150 MG (75 MG,2 IN 1 D),ORAL
     Route: 048
     Dates: start: 20080101, end: 20080123
  3. NEURONTIN [Suspect]
  4. PROSCAR [Concomitant]
  5. NITRODERM [Concomitant]
  6. LAMICTAL [Concomitant]
  7. CREON [Concomitant]
  8. NICARDIPINE HCL [Concomitant]
  9. ZOCOR [Concomitant]
  10. ACETAMINOPHEN [Concomitant]
  11. POTASSIUM CHLORIDE [Concomitant]
  12. RIVOTRIL [Concomitant]
  13. VITAMIN PP [Concomitant]
  14. VITAMIN B1 TAB [Concomitant]
  15. VITAMIN B6 [Concomitant]
  16. STILNOX [Concomitant]
  17. PLAVIX [Concomitant]
  18. HUMALOG [Concomitant]
  19. LANTUS [Concomitant]

REACTIONS (11)
  - ABNORMAL BEHAVIOUR [None]
  - BURNING SENSATION [None]
  - CALCULUS PROSTATIC [None]
  - GENERAL PHYSICAL HEALTH DETERIORATION [None]
  - HYPERKALAEMIA [None]
  - MYOCLONUS [None]
  - NAUSEA [None]
  - RENAL FAILURE CHRONIC [None]
  - SPEECH DISORDER [None]
  - TREMOR [None]
  - VOMITING [None]
